FAERS Safety Report 7898512-1 (Version None)
Quarter: 2011Q4

REPORT INFORMATION
  Report Type: 
  Country: None (occurrence: None)
  Receive Date: 20111107
  Receipt Date: 20111031
  Transmission Date: 20120403
  Serious: Yes (Death, Other)
  Sender: FDA-Public Use
  Company Number: JP-PFIZER INC-2011252826

PATIENT
  Age: 77 Year
  Sex: Male
  Weight: 46 kg

DRUGS (6)
  1. OMEPRAZOLE [Concomitant]
     Dosage: 1 DF, 2X/DAY
     Route: 042
  2. FULCALIQ [Concomitant]
     Dosage: 903 ML, 1X/DAY
     Route: 042
  3. FENTANYL [Concomitant]
     Indication: RENAL CELL CARCINOMA
     Dosage: 2.1 MG, EVERY 3 DAYS
     Route: 061
  4. TEMSIROLIMUS [Suspect]
     Indication: RENAL CELL CARCINOMA
     Dosage: 15 MG, WEEKLY
     Route: 041
     Dates: start: 20110707, end: 20110721
  5. DECADRON [Concomitant]
     Indication: PROPHYLAXIS
     Dosage: 3.3 MG, WEEKLY
     Route: 042
  6. CHLORPHENIRAMINE MALEATE [Concomitant]
     Indication: PROPHYLAXIS
     Dosage: 5 MG, WEEKLY
     Route: 042

REACTIONS (2)
  - DEATH [None]
  - INTERSTITIAL LUNG DISEASE [None]
